FAERS Safety Report 23533669 (Version 2)
Quarter: 2024Q1

REPORT INFORMATION
  Report Type: Report from Study
  Country: BG (occurrence: BG)
  Receive Date: 20240216
  Receipt Date: 20240317
  Transmission Date: 20240410
  Serious: Yes (Hospitalization, Other)
  Sender: FDA-Public Use
  Company Number: BG-ABBVIE-5640916

PATIENT
  Age: 68 Year
  Sex: Female

DRUGS (1)
  1. RINVOQ [Suspect]
     Active Substance: UPADACITINIB
     Indication: Rheumatoid arthritis
     Dosage: 1 TABLET
     Route: 048
     Dates: start: 202303

REACTIONS (1)
  - Large intestine polyp [Unknown]
